FAERS Safety Report 20962021 (Version 1)
Quarter: 2022Q2

REPORT INFORMATION
  Report Type: Spontaneous
  Country: US (occurrence: None)
  Receive Date: 20220614
  Receipt Date: 20220614
  Transmission Date: 20220721
  Serious: Yes (Hospitalization)
  Sender: FDA-Public Use
  Company Number: None

PATIENT
  Age: 30 Year
  Sex: Female
  Weight: 66 kg

DRUGS (2)
  1. AMPICILLIN [Suspect]
     Active Substance: AMPICILLIN
     Indication: Amniotic cavity infection
     Route: 042
  2. GENTAMICIN [Concomitant]
     Active Substance: GENTAMICIN

REACTIONS (5)
  - Rash morbilliform [None]
  - Rash [None]
  - Eosinophilia [None]
  - Erythema multiforme [None]
  - Target skin lesion [None]
